FAERS Safety Report 14856534 (Version 3)
Quarter: 2020Q2

REPORT INFORMATION
  Report Type: Spontaneous
  Country: US (occurrence: US)
  Receive Date: 20180507
  Receipt Date: 20200505
  Transmission Date: 20200713
  Serious: Yes (Other)
  Sender: FDA-Public Use
  Company Number: US-ROCHE-2075524

PATIENT
  Age: 73 Year
  Sex: Female

DRUGS (1)
  1. ESBRIET [Suspect]
     Active Substance: PIRFENIDONE
     Indication: INTERSTITIAL LUNG DISEASE
     Route: 048
     Dates: start: 20161231

REACTIONS (10)
  - Abdominal pain upper [Unknown]
  - Diarrhoea [Unknown]
  - Dyspnoea [Unknown]
  - Off label use [Unknown]
  - Dry skin [Not Recovered/Not Resolved]
  - Vision blurred [Unknown]
  - Lacrimation increased [Unknown]
  - Intentional product use issue [Unknown]
  - Cough [Unknown]
  - Pain [Unknown]

NARRATIVE: CASE EVENT DATE: 20161231
